FAERS Safety Report 8975746 (Version 1)
Quarter: 2012Q4

REPORT INFORMATION
  Report Type: 
  Country: US (occurrence: US)
  Receive Date: 20121219
  Receipt Date: 20121219
  Transmission Date: 20130627
  Serious: No
  Sender: FDA-Public Use
  Company Number: US-PFIZER INC-2012316835

PATIENT
  Sex: Female

DRUGS (1)
  1. PREMARIN [Suspect]
     Dosage: 0.45, UNK
     Route: 048

REACTIONS (4)
  - Weight decreased [Unknown]
  - Therapeutic response unexpected [Unknown]
  - Insomnia [Unknown]
  - Libido decreased [Unknown]
